FAERS Safety Report 8459043-3 (Version None)
Quarter: 2012Q2

REPORT INFORMATION
  Report Type: 
  Country: None (occurrence: None)
  Receive Date: 20120622
  Receipt Date: 20120615
  Transmission Date: 20120825
  Serious: Yes (Other)
  Sender: FDA-Public Use
  Company Number: JP-PFIZER INC-2012112543

PATIENT
  Age: 74 Year
  Sex: Female
  Weight: 50 kg

DRUGS (8)
  1. CELEBREX [Suspect]
     Indication: CHEST PAIN
     Dosage: 100 MG, 2X/DAY
     Route: 048
     Dates: start: 20120501, end: 20120504
  2. LOXONIN [Concomitant]
     Dosage: 60 MG, 3X/DAY
     Route: 048
     Dates: start: 20120507
  3. CELOOP [Concomitant]
     Dosage: 50 MG, 2X/DAY
     Route: 048
     Dates: start: 20120501
  4. LYRICA [Suspect]
     Indication: CHEST PAIN
     Dosage: 75 MG, 2X/DAY
     Route: 048
     Dates: start: 20120507, end: 20120508
  5. RIZE [Suspect]
     Dosage: 5 MG, 3X/DAY
     Route: 048
     Dates: start: 20120506, end: 20120507
  6. BANAN [Concomitant]
     Dosage: 100 MG, 2X/DAY
     Route: 048
     Dates: start: 20120505, end: 20120508
  7. LOXONIN [Concomitant]
     Dosage: 60 MG, 2X/DAY
     Route: 048
     Dates: start: 20120505, end: 20120506
  8. ETODOLAC [Concomitant]
     Dosage: UNK
     Route: 048
     Dates: start: 20120401

REACTIONS (3)
  - MUSCULAR WEAKNESS [None]
  - DRUG INEFFECTIVE FOR UNAPPROVED INDICATION [None]
  - GAIT DISTURBANCE [None]
